FAERS Safety Report 9040777 (Version 1)
Quarter: 2013Q1

REPORT INFORMATION
  Report Type: Spontaneous
  Country: TR (occurrence: TR)
  Receive Date: 20130129
  Receipt Date: 20130129
  Transmission Date: 20140127
  Serious: Yes (Life-Threatening)
  Sender: FDA-Public Use
  Company Number: TR-JNJFOC-20130111052

PATIENT
  Sex: Male

DRUGS (3)
  1. REMICADE [Suspect]
     Indication: ERYTHRODERMIC PSORIASIS
     Dosage: CONFLICTINGLY ALSO REPORTED AS 13-NOV-2013
     Route: 042
     Dates: start: 20121113
  2. REMICADE [Suspect]
     Indication: ERYTHRODERMIC PSORIASIS
     Dosage: CONFLICTINGLY ALSO REPORTED AS 28-NOV-2013
     Route: 042
     Dates: start: 20121128
  3. ISONIAZID [Concomitant]
     Route: 048
     Dates: start: 20121108

REACTIONS (3)
  - Oesophageal candidiasis [Recovered/Resolved]
  - Tuberculosis [Not Recovered/Not Resolved]
  - Cardiac failure [Not Recovered/Not Resolved]
